FAERS Safety Report 7532323-1 (Version None)
Quarter: 2011Q2

REPORT INFORMATION
  Report Type: 
  Country: None (occurrence: None)
  Receive Date: 20110608
  Receipt Date: 20110526
  Transmission Date: 20111010
  Serious: Yes (Hospitalization)
  Sender: FDA-Public Use
  Company Number: FR-MERCK-1106FRA00001

PATIENT
  Age: 64 Year
  Sex: Female

DRUGS (7)
  1. DIOSMIN [Concomitant]
     Route: 065
  2. NICARDIPINE HYDROCHLORIDE [Suspect]
     Route: 048
  3. FENOFIBRATE [Suspect]
     Route: 048
     Dates: end: 20110301
  4. JANUVIA [Suspect]
     Route: 048
     Dates: start: 20090301
  5. METFORMIN HCL [Suspect]
     Route: 048
  6. IRBESARTAN [Suspect]
     Route: 048
  7. ZOLPIDEM TARTRATE [Suspect]
     Route: 048
     Dates: end: 20110301

REACTIONS (3)
  - CUTANEOUS VASCULITIS [None]
  - PRURITUS [None]
  - RASH MACULO-PAPULAR [None]
